FAERS Safety Report 6928377-3 (Version None)
Quarter: 2010Q3

REPORT INFORMATION
  Report Type: 
  Country: None (occurrence: None)
  Receive Date: 20100817
  Receipt Date: 20100809
  Transmission Date: 20110219
  Serious: Yes (Other)
  Sender: FDA-Public Use
  Company Number: US-AMGEN-KDL427674

PATIENT
  Sex: Female
  Weight: 54 kg

DRUGS (1)
  1. ENBREL [Suspect]
     Indication: PSORIASIS
     Route: 058
     Dates: start: 20071001, end: 20100420

REACTIONS (7)
  - CELLULITIS [None]
  - IMPAIRED HEALING [None]
  - LIMB INJURY [None]
  - OEDEMA PERIPHERAL [None]
  - PSORIASIS [None]
  - SKIN ULCER [None]
  - THERAPEUTIC RESPONSE DECREASED [None]
